FAERS Safety Report 18501348 (Version 1)
Quarter: 2020Q4

REPORT INFORMATION
  Report Type: Spontaneous
  Country: US (occurrence: US)
  Receive Date: 20201113
  Receipt Date: 20201113
  Transmission Date: 20210114
  Serious: Yes (Hospitalization)
  Sender: FDA-Public Use
  Company Number: None

PATIENT
  Age: 50 Year
  Sex: Female

DRUGS (2)
  1. HUMIRA [Suspect]
     Active Substance: ADALIMUMAB
     Dosage: ?          OTHER FREQUENCY:WEEKLY;?
     Route: 058
     Dates: start: 20180907
  2. ASACOL HD [Concomitant]
     Active Substance: MESALAMINE
     Dates: start: 20190923

REACTIONS (7)
  - Diarrhoea [None]
  - Stress [None]
  - Condition aggravated [None]
  - Abdominal pain [None]
  - Weight abnormal [None]
  - Quality of life decreased [None]
  - Surgery [None]

NARRATIVE: CASE EVENT DATE: 20201112
